FAERS Safety Report 4282324-4 (Version None)
Quarter: 2004Q1

REPORT INFORMATION
  Report Type: 
  Country: None (occurrence: None)
  Receive Date: 20040112
  Receipt Date: 20030926
  Transmission Date: 20041129
  Serious: Yes (Other)
  Sender: FDA-Public Use
  Company Number: 341613

PATIENT
  Age: 49 Year
  Sex: Male
  Weight: 78.5 kg

DRUGS (1)
  1. FUZEON [Suspect]
     Indication: HIV INFECTION
     Dosage: 90 MG 2 PER DAY SUBCUTANEOUS
     Route: 058
     Dates: start: 20030701

REACTIONS (3)
  - ANAEMIA [None]
  - BLOOD AMYLASE INCREASED [None]
  - SYNCOPE [None]
